FAERS Safety Report 9075103 (Version 2)
Quarter: 2013Q1

REPORT INFORMATION
  Report Type: Spontaneous
  Country: US (occurrence: US)
  Receive Date: 20130129
  Receipt Date: 20130227
  Transmission Date: 20140127
  Serious: No
  Sender: FDA-Public Use
  Company Number: US-ELI_LILLY_AND_COMPANY-US201301007047

PATIENT
  Sex: Male
  Weight: 96 kg

DRUGS (2)
  1. ZYPREXA RELPREVV [Suspect]
     Indication: BIPOLAR DISORDER
     Dosage: 300 MG, 2/M
     Route: 030
  2. ZYPREXA RELPREVV [Suspect]
     Dosage: 300 MG, 2/M

REACTIONS (2)
  - Injection site haemorrhage [Unknown]
  - Drug dose omission [Unknown]
